FAERS Safety Report 16823932 (Version 3)
Quarter: 2019Q4

REPORT INFORMATION
  Report Type: Spontaneous
  Country: JP (occurrence: JP)
  Receive Date: 20190918
  Receipt Date: 20191226
  Transmission Date: 20200122
  Serious: Yes (Hospitalization)
  Sender: FDA-Public Use
  Company Number: JP-EISAI MEDICAL RESEARCH-EC-2019-062174

PATIENT
  Age: 70 Year
  Sex: Male

DRUGS (15)
  1. UBRETID [Concomitant]
     Active Substance: DISTIGMINE BROMIDE
     Indication: DYSURIA
     Route: 048
     Dates: start: 20190703
  2. NAFTOPIDIL [Concomitant]
     Active Substance: NAFTOPIDIL
     Indication: BENIGN PROSTATIC HYPERPLASIA
     Dates: start: 20190703, end: 20190710
  3. QUETIAPINE. [Concomitant]
     Active Substance: QUETIAPINE
     Indication: SCHIZOPHRENIA
     Route: 048
     Dates: start: 20190703
  4. BELSOMRA [Concomitant]
     Active Substance: SUVOREXANT
     Indication: INSOMNIA
     Dates: start: 20190821
  5. SILODOSIN OD [Concomitant]
     Indication: BENIGN PROSTATIC HYPERPLASIA
     Dates: start: 20190711
  6. SILODOSIN OD [Concomitant]
     Indication: DYSURIA
  7. FYCOMPA [Suspect]
     Active Substance: PERAMPANEL
     Indication: PARTIAL SEIZURES
     Route: 048
     Dates: start: 20190617, end: 20190625
  8. FYCOMPA [Suspect]
     Active Substance: PERAMPANEL
     Route: 048
     Dates: start: 20190703, end: 20190709
  9. SEROQUEL [Concomitant]
     Active Substance: QUETIAPINE FUMARATE
     Indication: SCHIZOPHRENIA
     Route: 048
     Dates: start: 20190703
  10. E KEPPRA [Suspect]
     Active Substance: LEVETIRACETAM
     Indication: PARTIAL SEIZURES
     Dates: start: 20170216, end: 20190827
  11. FYCOMPA [Suspect]
     Active Substance: PERAMPANEL
     Route: 048
     Dates: start: 20190626, end: 20190702
  12. E KEPPRA [Suspect]
     Active Substance: LEVETIRACETAM
     Dates: start: 20190904
  13. NAFTOPIDIL [Concomitant]
     Active Substance: NAFTOPIDIL
     Indication: DYSURIA
  14. AMITIZA [Concomitant]
     Active Substance: LUBIPROSTONE
     Indication: CONSTIPATION
     Dates: start: 20190725
  15. E KEPPRA [Suspect]
     Active Substance: LEVETIRACETAM
     Dates: start: 20190828, end: 20190903

REACTIONS (4)
  - Agitation [Recovered/Resolved]
  - Delirium [Recovered/Resolved]
  - Hallucination [Recovered/Resolved]
  - Restlessness [Recovered/Resolved]

NARRATIVE: CASE EVENT DATE: 20190708
